FAERS Safety Report 8602161-7 (Version None)
Quarter: 2012Q3

REPORT INFORMATION
  Report Type: 
  Country: None (occurrence: None)
  Receive Date: 20120817
  Receipt Date: 20120814
  Transmission Date: 20120928
  Serious: No
  Sender: FDA-Public Use
  Company Number: US-PFIZER INC-2012199707

PATIENT
  Age: 76 Year
  Sex: Female
  Weight: 68.934 kg

DRUGS (5)
  1. COZAAR [Suspect]
     Indication: HYPERTENSION
     Dosage: 100 MG, DAILY
  2. CARDURA [Suspect]
     Indication: HYPERTENSION
     Dosage: 5 MG, DAILY
  3. INDERAL LA [Suspect]
     Indication: HYPERTENSION
     Dosage: 160 MG, DAILY
  4. TOVIAZ [Suspect]
     Indication: HYPERTONIC BLADDER
     Dosage: 8 MG, DAILY
     Dates: start: 20120101
  5. VITAMIN D [Concomitant]
     Indication: VITAMIN SUPPLEMENTATION
     Dosage: 400 IU, 2X/DAY

REACTIONS (2)
  - JOINT SWELLING [None]
  - HYPERTENSION [None]
